FAERS Safety Report 19311005 (Version 2)
Quarter: 2021Q2

REPORT INFORMATION
  Report Type: Spontaneous
  Country: JP (occurrence: JP)
  Receive Date: 20210526
  Receipt Date: 20210610
  Transmission Date: 20210717
  Serious: Yes (Other)
  Sender: FDA-Public Use
  Company Number: JP-BAXTER-2021BAX012589

PATIENT
  Age: 7 Decade
  Sex: Male

DRUGS (10)
  1. DOXORUBICIN HYDROCHLORIDE. [Suspect]
     Active Substance: DOXORUBICIN HYDROCHLORIDE
     Indication: MANTLE CELL LYMPHOMA
     Dosage: 1?5TH CYCLE OF VR?CAP THERAPY
     Route: 065
  2. PREDONINE [Suspect]
     Active Substance: PREDNISOLONE
     Indication: MANTLE CELL LYMPHOMA
     Dosage: 1?5TH CYCLE OF VR?CAP THERAPY
     Route: 065
  3. PREDONINE [Suspect]
     Active Substance: PREDNISOLONE
     Dosage: 6TH CYCLE OF VR?CAP THERAPY
     Route: 065
  4. RITUXIMAB(GENETICAL RECOMBINATION) [Suspect]
     Active Substance: RITUXIMAB
     Dosage: 6TH CYCLE OF VR?CAP THERAPY
     Route: 065
  5. BORTEZOMIB. [Suspect]
     Active Substance: BORTEZOMIB
     Indication: MANTLE CELL LYMPHOMA
     Dosage: 1?5TH CYCLE OF VR?CAP THERAPY
     Route: 065
  6. DOXORUBICIN HYDROCHLORIDE. [Suspect]
     Active Substance: DOXORUBICIN HYDROCHLORIDE
     Dosage: 6TH CYCLE OF VR?CAP THERAPY
     Route: 065
  7. ENDOXAN 1G [Suspect]
     Active Substance: CYCLOPHOSPHAMIDE
     Dosage: 6TH CYCLE OF VR?CAP THERAPY
     Route: 065
  8. BORTEZOMIB. [Suspect]
     Active Substance: BORTEZOMIB
     Dosage: 6TH CYCLE OF VR?CAP THERAPY
     Route: 065
  9. RITUXIMAB(GENETICAL RECOMBINATION) [Suspect]
     Active Substance: RITUXIMAB
     Indication: MANTLE CELL LYMPHOMA
     Dosage: 1?5TH CYCLE OF VR?CAP THERAPY
     Route: 065
  10. ENDOXAN 1G [Suspect]
     Active Substance: CYCLOPHOSPHAMIDE
     Indication: MANTLE CELL LYMPHOMA
     Dosage: 1?5TH CYCLE OF VR?CAP THERAPY
     Route: 065

REACTIONS (1)
  - Blood triglycerides increased [Unknown]
